FAERS Safety Report 13840881 (Version 3)
Quarter: 2017Q4

REPORT INFORMATION
  Report Type: Report from Study
  Country: None (occurrence: JP)
  Receive Date: 20170807
  Receipt Date: 20171102
  Transmission Date: 20180320
  Serious: Yes (Hospitalization)
  Sender: FDA-Public Use
  Company Number: JP-ABBVIE-17P-087-2057553-00

PATIENT
  Age: 83 Year
  Sex: Female
  Weight: 49 kg

DRUGS (7)
  1. VIEKIRAX [Suspect]
     Active Substance: OMBITASVIR\PARITAPREVIR\RITONAVIR
     Indication: HEPATITIS C
     Route: 048
     Dates: start: 20170117, end: 20170131
  2. AZILSARTAN [Concomitant]
     Active Substance: AZILSARTAN KAMEDOXOMIL
     Indication: HYPERTENSION
     Route: 048
  3. MECOBALAMIN [Concomitant]
     Active Substance: METHYLCOBALAMIN
     Indication: NEUROPATHY PERIPHERAL
     Route: 048
  4. ALLOPURINOL. [Concomitant]
     Active Substance: ALLOPURINOL
     Indication: HYPERURICAEMIA
     Route: 048
  5. SOLITA-T1 [Concomitant]
     Indication: RENAL DISORDER
  6. SOLITA-T1 [Concomitant]
     Indication: ACUTE KIDNEY INJURY
     Route: 041
     Dates: start: 20170201, end: 20170207
  7. VIEKIRAX [Suspect]
     Active Substance: OMBITASVIR\PARITAPREVIR\RITONAVIR
     Route: 048
     Dates: start: 20170208, end: 20170309

REACTIONS (1)
  - Renal disorder [Recovered/Resolved]

NARRATIVE: CASE EVENT DATE: 20170129
